FAERS Safety Report 9686051 (Version 2)
Quarter: 2013Q4

REPORT INFORMATION
  Report Type: Spontaneous
  Country: CA (occurrence: CA)
  Receive Date: 20131113
  Receipt Date: 20131113
  Transmission Date: 20140711
  Serious: Yes (Hospitalization)
  Sender: FDA-Public Use
  Company Number: CA-SA-2013-07811

PATIENT
  Age: 26 Year
  Sex: Female

DRUGS (1)
  1. TUBERCULIN PPD(M) 5 TU [Suspect]
     Indication: TUBERCULIN TEST
     Dosage: START THERAPY DATE TEXT : NOT REPORTED?DAILY DOSE TEXT : 1.0 DOSAGE FORMS
     Route: 023
     Dates: start: 20120214, end: 20120214

REACTIONS (11)
  - Anaphylactic reaction [Recovered/Resolved]
  - Cold sweat [Recovered/Resolved]
  - Feeling cold [Recovered/Resolved]
  - Palpitations [Recovered/Resolved]
  - Urticaria [Recovered/Resolved]
  - Swollen tongue [Recovered/Resolved]
  - Swelling face [Recovered/Resolved]
  - Nausea [Recovered/Resolved]
  - Generalised oedema [Recovered/Resolved]
  - Pyrexia [Recovered/Resolved]
  - Inflammation [Recovered/Resolved]
